FAERS Safety Report 5210093-X (Version None)
Quarter: 2006Q4

REPORT INFORMATION
  Report Type: 
  Country: None (occurrence: None)
  Receive Date: 20061103
  Receipt Date: 20060626
  Transmission Date: 20070319
  Serious: No
  Sender: FDA-Public Use
  Company Number: 06H-163-0308690-00

PATIENT
  Age: 72 Year
  Sex: Male

DRUGS (2)
  1. AMIDATE [Suspect]
     Indication: SEDATION
     Dates: start: 20060624, end: 20060624
  2. FENTANYL [Concomitant]

REACTIONS (1)
  - MYOCLONIC EPILEPSY [None]
